FAERS Safety Report 8916185 (Version 3)
Quarter: 2014Q1

REPORT INFORMATION
  Report Type: Spontaneous
  Country: US (occurrence: US)
  Receive Date: 20121120
  Receipt Date: 20140121
  Transmission Date: 20141002
  Serious: Yes (Other)
  Sender: FDA-Public Use
  Company Number: US-GLAXOSMITHKLINE-A1002515A

PATIENT
  Age: 56 Year
  Sex: Female

DRUGS (2)
  1. PROMACTA [Suspect]
     Indication: IMMUNE THROMBOCYTOPENIC PURPURA
     Dosage: 12.5MG PER DAY
     Route: 048
     Dates: start: 20120327
  2. HYPERTENSION MED [Concomitant]

REACTIONS (6)
  - Blindness transient [Recovered/Resolved]
  - Pain in jaw [Unknown]
  - Sensation of heaviness [Unknown]
  - Oropharyngeal pain [Unknown]
  - Visual impairment [Not Recovered/Not Resolved]
  - Vision blurred [Not Recovered/Not Resolved]
